FAERS Safety Report 7511354-1 (Version None)
Quarter: 2011Q2

REPORT INFORMATION
  Report Type: 
  Country: None (occurrence: None)
  Receive Date: 20110531
  Receipt Date: 20110524
  Transmission Date: 20111010
  Serious: Yes (Other)
  Sender: FDA-Public Use
  Company Number: FR-JNJFOC-20110409620

PATIENT
  Sex: Male
  Weight: 57 kg

DRUGS (5)
  1. TMC114 [Suspect]
     Indication: HIV INFECTION
     Route: 048
     Dates: start: 20110322
  2. NORVIR [Suspect]
     Indication: HIV INFECTION
     Route: 065
     Dates: start: 20110322
  3. ATARAX [Concomitant]
     Indication: ANXIETY
     Dates: start: 20110322
  4. ASPIRIN C [Concomitant]
     Indication: MYALGIA
     Dates: start: 20110402, end: 20110404
  5. TRUVADA [Suspect]
     Indication: HIV INFECTION
     Dosage: 200/245
     Route: 065
     Dates: start: 20110322

REACTIONS (1)
  - BLOOD CREATINE PHOSPHOKINASE INCREASED [None]
